FAERS Safety Report 4983821-6 (Version None)
Quarter: 2006Q1

REPORT INFORMATION
  Report Type: 
  Country: None (occurrence: None)
  Receive Date: 20060301
  Receipt Date: 20051115
  Transmission Date: 20060701
  Serious: No
  Sender: FDA-Public Use
  Company Number: S05-USA-04935-01

PATIENT
  Age: 75 Year
  Sex: Female

DRUGS (12)
  1. NAMENDA [Suspect]
     Indication: DEMENTIA ALZHEIMER'S TYPE
     Dosage: 10 MG BID PO
     Route: 048
     Dates: start: 20051012
  2. NAMENDA [Suspect]
     Indication: DEMENTIA ALZHEIMER'S TYPE
     Dosage: 5 MG QD PO
     Route: 048
     Dates: start: 20050921, end: 20050927
  3. NAMENDA [Suspect]
     Indication: DEMENTIA ALZHEIMER'S TYPE
     Dosage: 5 MG BID PO
     Route: 048
     Dates: start: 20050928, end: 20051004
  4. NAMENDA [Suspect]
     Indication: DEMENTIA ALZHEIMER'S TYPE
     Dosage: 15 MG QD PO
     Route: 048
     Dates: start: 20051005, end: 20051011
  5. ARICEPT [Concomitant]
  6. EVISTA [Concomitant]
  7. ZANTAC [Concomitant]
  8. CLARINEX [Concomitant]
  9. ZOLOFT [Concomitant]
  10. AMITRIPTYLINE HCL [Concomitant]
  11. TRAMADOL HCL [Concomitant]
  12. LAMICTAL [Concomitant]

REACTIONS (1)
  - HALLUCINATION, VISUAL [None]
